APPROVED DRUG PRODUCT: RANOLAZINE
Active Ingredient: RANOLAZINE
Strength: 500MG
Dosage Form/Route: TABLET, EXTENDED RELEASE;ORAL
Application: A207690 | Product #001
Applicant: AMNEAL PHARMACEUTICALS LLC
Approved: Mar 11, 2021 | RLD: No | RS: No | Type: DISCN